FAERS Safety Report 25852243 (Version 1)
Quarter: 2025Q3

REPORT INFORMATION
  Report Type: Spontaneous
  Country: EU (occurrence: EU)
  Receive Date: 20250926
  Receipt Date: 20250926
  Transmission Date: 20251021
  Serious: Yes (Other)
  Sender: pharmaAND
  Company Number: EU-INTSELCHIM-202502118

PATIENT
  Sex: Female

DRUGS (2)
  1. RUBRACA [Suspect]
     Active Substance: RUCAPARIB CAMSYLATE
     Dosage: 600 MG TWICE DAILY
     Dates: start: 20250601
  2. RUBRACA [Suspect]
     Active Substance: RUCAPARIB CAMSYLATE
     Dosage: 500 MG TWICE DAILY
     Dates: start: 20250724, end: 20250911

REACTIONS (6)
  - Hyperbilirubinaemia [Not Recovered/Not Resolved]
  - Thrombocytopenia [Unknown]
  - Aspartate aminotransferase increased [Recovering/Resolving]
  - Alanine aminotransferase increased [Recovering/Resolving]
  - Serum ferritin increased [Unknown]
  - Asthenia [Not Recovered/Not Resolved]
